FAERS Safety Report 21001493 (Version 1)
Quarter: 2022Q2

REPORT INFORMATION
  Report Type: Spontaneous
  Country: ES (occurrence: ES)
  Receive Date: 20220624
  Receipt Date: 20220624
  Transmission Date: 20220721
  Serious: Yes (Other)
  Sender: FDA-Public Use
  Company Number: ES-SUN PHARMACEUTICAL INDUSTRIES LTD-2022R1-341706

PATIENT
  Age: 41 Year
  Sex: Male

DRUGS (1)
  1. INDOMETHACIN [Suspect]
     Active Substance: INDOMETHACIN
     Indication: Eagle^s syndrome
     Dosage: 25 MILLIGRAM, BID
     Route: 065

REACTIONS (2)
  - Drug intolerance [Unknown]
  - Therapy partial responder [Unknown]
